FAERS Safety Report 21441711 (Version 1)
Quarter: 2022Q4

REPORT INFORMATION
  Report Type: Spontaneous
  Country: US (occurrence: US)
  Receive Date: 20221011
  Receipt Date: 20221011
  Transmission Date: 20230112
  Serious: No
  Sender: FDA-Public Use
  Company Number: US-SA-SAC20221005000798

PATIENT
  Age: 46 Year
  Sex: Male
  Weight: 64.8 kg

DRUGS (2)
  1. DUPIXENT [Suspect]
     Active Substance: DUPILUMAB
     Indication: Nasal polyps
     Dosage: 300 MG; EVERY 2 WEEKS
     Route: 058
     Dates: start: 20201002
  2. DUPIXENT [Suspect]
     Active Substance: DUPILUMAB
     Indication: Asthma

REACTIONS (2)
  - Abdominal pain upper [Unknown]
  - Helicobacter infection [Unknown]

NARRATIVE: CASE EVENT DATE: 20220919
